FAERS Safety Report 8024132-4 (Version None)
Quarter: 2012Q1

REPORT INFORMATION
  Report Type: 
  Country: None (occurrence: None)
  Receive Date: 20120103
  Receipt Date: 20111228
  Transmission Date: 20120608
  Serious: Yes (Hospitalization, Other)
  Sender: FDA-Public Use
  Company Number: 2011MA018074

PATIENT
  Age: 76 Year
  Sex: Female

DRUGS (9)
  1. PRILOSEC [Suspect]
     Dosage: ;BID;PO
     Route: 048
     Dates: start: 20110101, end: 20111101
  2. HYDROGEN PEROXIDE SOLUTION [Suspect]
     Indication: OROPHARYNGEAL PAIN
     Dosage: ;PO
     Route: 048
     Dates: start: 20110101
  3. CLARITIN [Suspect]
     Indication: OROPHARYNGEAL PAIN
     Dosage: ;PO
     Route: 048
     Dates: start: 20110101
  4. LUNESTA [Concomitant]
  5. NYSTATIN-TRIAMCINOLONE ACETONIDE [Suspect]
     Indication: OROPHARYNGEAL PAIN
     Dosage: ;Q6H;PO
     Route: 048
     Dates: start: 20110401
  6. CLARITIN-D [Suspect]
     Indication: OROPHARYNGEAL PAIN
     Dosage: ;PO
     Route: 048
     Dates: start: 20110101
  7. NOSE SPRAY [Suspect]
     Indication: OROPHARYNGEAL PAIN
     Dosage: ;NAS
     Route: 045
     Dates: start: 20110101
  8. UNSPECIFIED ALLERGY TABLET [Suspect]
     Indication: OROPHARYNGEAL PAIN
     Dates: start: 20110101
  9. MULTI-VITAMINS [Suspect]
     Indication: VITAMIN SUPPLEMENTATION
     Dosage: ;PO
     Route: 048
     Dates: start: 20110401

REACTIONS (10)
  - DRY THROAT [None]
  - HYPERSENSITIVITY [None]
  - TRANSIENT ISCHAEMIC ATTACK [None]
  - MUSCULOSKELETAL STIFFNESS [None]
  - PAIN IN EXTREMITY [None]
  - DRY MOUTH [None]
  - OROPHARYNGEAL PAIN [None]
  - DRUG INEFFECTIVE [None]
  - DYSPEPSIA [None]
  - TINNITUS [None]
